FAERS Safety Report 7435575-1 (Version None)
Quarter: 2011Q2

REPORT INFORMATION
  Report Type: 
  Country: None (occurrence: None)
  Receive Date: 20110418
  Receipt Date: 20110408
  Transmission Date: 20111010
  Serious: Yes (Death)
  Sender: FDA-Public Use
  Company Number: UTC-006219

PATIENT
  Age: 67 Year
  Sex: Male

DRUGS (2)
  1. REMODULIN [Suspect]
     Dosage: 25.2 UG/KG (0.0175 UG/KG,1 IN 1 MIN),SUBCUTANEOUS
     Route: 058
     Dates: start: 20091201
  2. DIURETICS (DIURETICS) [Concomitant]

REACTIONS (1)
  - DEATH [None]
